FAERS Safety Report 6570222-2 (Version None)
Quarter: 2010Q1

REPORT INFORMATION
  Report Type: 
  Country: None (occurrence: None)
  Receive Date: 20100204
  Receipt Date: 20100129
  Transmission Date: 20100710
  Serious: Yes (Hospitalization)
  Sender: FDA-Public Use
  Company Number: ES-ABBOTT-09P-144-0578256-00

PATIENT
  Age: 37 Year
  Sex: Female
  Weight: 61 kg

DRUGS (5)
  1. HUMIRA [Suspect]
     Indication: CROHN'S DISEASE
     Route: 058
     Dates: start: 20090320, end: 20090522
  2. HUMIRA [Suspect]
     Dates: start: 20090629
  3. DACORTIN [Concomitant]
     Indication: CROHN'S DISEASE
     Dates: start: 20090420
  4. CEMIDON [Concomitant]
     Indication: ANTIBIOTIC PROPHYLAXIS
     Dates: start: 20090114
  5. PANTOPRAZOLE [Concomitant]
     Indication: DYSPEPSIA
     Dates: start: 20090511

REACTIONS (1)
  - VIRAL PHARYNGITIS [None]
